FAERS Safety Report 8776343 (Version 2)
Quarter: 2012Q4

REPORT INFORMATION
  Report Type: 
  Country: US (occurrence: US)
  Receive Date: 20120910
  Receipt Date: 20121003
  Transmission Date: 20130627
  Serious: Yes (Hospitalization, Other)
  Sender: FDA-Public Use
  Company Number: US-GILEAD-2012-0060799

PATIENT
  Age: 50 Year
  Sex: Female

DRUGS (2)
  1. LETAIRIS [Suspect]
     Indication: PRODUCT USED FOR UNKNOWN INDICATION
     Dosage: 5 mg, UNK
     Route: 048
     Dates: start: 20120802
  2. LETAIRIS [Suspect]
     Dates: start: 20120802

REACTIONS (5)
  - Loss of consciousness [Unknown]
  - Ankle fracture [Unknown]
  - Fluid retention [Unknown]
  - Headache [Unknown]
  - Oedema [Unknown]
